FAERS Safety Report 11432253 (Version 3)
Quarter: 2016Q2

REPORT INFORMATION
  Report Type: Report from Study
  Country: US (occurrence: US)
  Receive Date: 20150828
  Receipt Date: 20160405
  Transmission Date: 20160815
  Serious: Yes (Hospitalization, Other)
  Sender: FDA-Public Use
  Company Number: US-ABBVIE-15K-163-1449806-00

PATIENT
  Age: 43 Year
  Sex: Female

DRUGS (5)
  1. PANTOPRAZOLE [Concomitant]
     Active Substance: PANTOPRAZOLE SODIUM
     Indication: GASTROOESOPHAGEAL REFLUX DISEASE
  2. CHOLESTYRAMINE. [Concomitant]
     Active Substance: CHOLESTYRAMINE
     Indication: CROHN^S DISEASE
  3. NUBAINA [Concomitant]
     Indication: PRODUCT USED FOR UNKNOWN INDICATION
  4. HUMIRA [Suspect]
     Active Substance: ADALIMUMAB
     Route: 058
     Dates: start: 201411
  5. HUMIRA [Suspect]
     Active Substance: ADALIMUMAB
     Indication: CROHN^S DISEASE
     Route: 058
     Dates: start: 20140901

REACTIONS (14)
  - Abdominal distension [Unknown]
  - Splenomegaly [Unknown]
  - Constipation [Recovered/Resolved]
  - Portal vein dilatation [Unknown]
  - Sinusitis [Recovered/Resolved]
  - Small intestinal obstruction [Unknown]
  - Ovarian cyst [Unknown]
  - Nausea [Unknown]
  - Crohn^s disease [Recovering/Resolving]
  - Hepatomegaly [Unknown]
  - Haemoglobin decreased [Unknown]
  - Intestinal obstruction [Not Recovered/Not Resolved]
  - Clostridium difficile infection [Recovered/Resolved]
  - Portal hypertension [Unknown]

NARRATIVE: CASE EVENT DATE: 201409
